FAERS Safety Report 4531639-0 (Version None)
Quarter: 2004Q4

REPORT INFORMATION
  Report Type: 
  Country: None (occurrence: None)
  Receive Date: 20041217
  Receipt Date: 20041217
  Transmission Date: 20050328
  Serious: Yes (Life-Threatening, Hospitalization, Disabling)
  Sender: FDA-Public Use
  Company Number: None

PATIENT
  Age: 55 Year
  Sex: Male
  Weight: 90.7194 kg

DRUGS (9)
  1. ENBREL [Suspect]
     Indication: PSORIATIC ARTHROPATHY
     Dosage: 25 MG TWICE WEKLY SUBCUTANEOUS
     Route: 058
     Dates: start: 19990429, end: 20040616
  2. NEXIUM [Concomitant]
  3. BEXTRA [Concomitant]
  4. ELAVIL [Concomitant]
  5. TERAZOSIN HCL [Concomitant]
  6. LIPITOR [Concomitant]
  7. ZETIA [Concomitant]
  8. DDAVP [Concomitant]
  9. ENBREL [Concomitant]

REACTIONS (5)
  - DIABETES INSIPIDUS [None]
  - GRANULOMA [None]
  - HYPOPITUITARISM [None]
  - INFLAMMATION [None]
  - NECROSIS [None]
